FAERS Safety Report 17739930 (Version 3)
Quarter: 2020Q2

REPORT INFORMATION
  Report Type: Spontaneous
  Country: IT (occurrence: IT)
  Receive Date: 20200504
  Receipt Date: 20200629
  Transmission Date: 20200714
  Serious: Yes (Life-Threatening, Hospitalization, Other)
  Sender: FDA-Public Use
  Company Number: IT-ACCORD-180198

PATIENT
  Age: 50 Year
  Sex: Female
  Weight: 56 kg

DRUGS (3)
  1. CAPECITABINE. [Suspect]
     Active Substance: CAPECITABINE
     Indication: BREAST CANCER METASTATIC
     Dosage: 2500 MG/M2 DAYS 1-14, EVERY THREE WEEKS
     Dates: start: 201710, end: 2017
  2. LETROZOLE. [Concomitant]
     Active Substance: LETROZOLE
     Indication: METASTASES TO SPINE
  3. LETROZOLE. [Concomitant]
     Active Substance: LETROZOLE
     Indication: HORMONE RECEPTOR POSITIVE BREAST CANCER

REACTIONS (9)
  - Mucosal inflammation [Recovering/Resolving]
  - Asthenia [Recovering/Resolving]
  - Diarrhoea [Recovering/Resolving]
  - Haemoglobin decreased [Recovering/Resolving]
  - Condition aggravated [Recovering/Resolving]
  - Neutropenia [Recovered/Resolved]
  - Posterior reversible encephalopathy syndrome [Recovered/Resolved]
  - Vomiting [Recovering/Resolving]
  - Haematotoxicity [Recovering/Resolving]

NARRATIVE: CASE EVENT DATE: 2017
